FAERS Safety Report 26152221 (Version 1)
Quarter: 2025Q4

REPORT INFORMATION
  Report Type: Spontaneous
  Country: EU (occurrence: EU)
  Receive Date: 20251214
  Receipt Date: 20251214
  Transmission Date: 20260118
  Serious: Yes (Other)
  Sender: AUROBINDO
  Company Number: EU-AEMPS-1783801

PATIENT
  Age: 81 Year
  Sex: Female
  Weight: 60 kg

DRUGS (3)
  1. ACETYLCYSTEINE [Suspect]
     Active Substance: ACETYLCYSTEINE
     Indication: Pneumonia bacterial
     Dosage: UNK
     Route: 061
  2. CEFUROXIME SODIUM [4]
     Active Substance: CEFUROXIME SODIUM
     Indication: Pneumonia bacterial
     Dosage: IT WAS PRESCRIBED ON NOVEMBER 18TH FOR TWICE A DAY, BUT IT WAS NOT DISPENSED AT THE PHARMACY. ACETYL CYSTEINE ??WAS DISPENSED INSTEAD OF CEFUROXIME.
     Route: 061
  3. TRYDONIS 87 MICROGRAMOS/5 MICROGRAMOS/9 MICROGRAMOS SOLUCION PARA INHA [Concomitant]
     Indication: Chronic obstructive pulmonary disease
     Dosage: 1 INHALATION TWICE A DAY
     Dates: start: 20240625

REACTIONS (3)
  - Respiratory tract infection [Recovering/Resolving]
  - Drug ineffective [Recovering/Resolving]
  - Wrong drug [Recovering/Resolving]

NARRATIVE: CASE EVENT DATE: 20251118
